FAERS Safety Report 9168218 (Version 2)
Quarter: 2013Q1

REPORT INFORMATION
  Report Type: Spontaneous
  Country: PE (occurrence: None)
  Receive Date: 20130307
  Receipt Date: 20130315
  Transmission Date: 20140127
  Serious: Yes (Hospitalization, Other)
  Sender: FDA-Public Use
  Company Number: SYM-2013-01307

PATIENT
  Age: 50 Year
  Sex: Female

DRUGS (1)
  1. BUPROPION [Suspect]
     Indication: DEPRESSION
     Route: 048
     Dates: start: 201212, end: 20130115

REACTIONS (3)
  - Convulsion [None]
  - Incorrect dose administered [None]
  - Grand mal convulsion [None]
